FAERS Safety Report 10537934 (Version 2)
Quarter: 2014Q4

REPORT INFORMATION
  Report Type: Report from Study
  Country: US (occurrence: US)
  Receive Date: 20141023
  Receipt Date: 20141031
  Transmission Date: 20150529
  Serious: Yes (Other)
  Sender: FDA-Public Use
  Company Number: US-BAYER-2014-154395

PATIENT
  Sex: Female

DRUGS (1)
  1. MIRENA [Suspect]
     Active Substance: LEVONORGESTREL
     Indication: MENORRHAGIA
     Dosage: UNK
     Route: 015
     Dates: start: 201404

REACTIONS (12)
  - Feeling abnormal [Not Recovered/Not Resolved]
  - Bone density decreased [Not Recovered/Not Resolved]
  - Crying [Not Recovered/Not Resolved]
  - Hormone level abnormal [Not Recovered/Not Resolved]
  - Lower limb fracture [None]
  - Alopecia [Not Recovered/Not Resolved]
  - Skin disorder [Not Recovered/Not Resolved]
  - Negative thoughts [Not Recovered/Not Resolved]
  - Uterine haemorrhage [Not Recovered/Not Resolved]
  - Weight increased [Not Recovered/Not Resolved]
  - Breast pain [Not Recovered/Not Resolved]
  - Trichorrhexis [Not Recovered/Not Resolved]
